FAERS Safety Report 8869036 (Version 1)
Quarter: 2012Q4

REPORT INFORMATION
  Report Type: Spontaneous
  Country: US (occurrence: None)
  Receive Date: 20121022
  Receipt Date: 20121022
  Transmission Date: 20130627
  Serious: Yes (Hospitalization)
  Sender: FDA-Public Use
  Company Number: 2012MA012356

PATIENT
  Age: 79 Year
  Sex: Male

DRUGS (4)
  1. IBUPROFEN [Suspect]
     Indication: KNEE PAIN
     Route: 048
     Dates: start: 20120507, end: 20120514
  2. QUININE [Concomitant]
  3. TAMUREX [Concomitant]
  4. FLUTICASONE [Concomitant]

REACTIONS (2)
  - Chest pain [None]
  - Malaise [None]
